FAERS Safety Report 4868765-2 (Version None)
Quarter: 2005Q4

REPORT INFORMATION
  Report Type: 
  Country: None (occurrence: None)
  Receive Date: 20051223
  Receipt Date: 20051216
  Transmission Date: 20060501
  Serious: Yes (Hospitalization)
  Sender: FDA-Public Use
  Company Number: 2005JP002197

PATIENT
  Age: 40 Year
  Sex: Female

DRUGS (4)
  1. PROGRAF [Suspect]
     Indication: LIVER TRANSPLANT
  2. CYCLOPHOSPHAMIDE [Concomitant]
  3. MYCOPHENOLATE MOFETIL (MYCOPHENOLATE MOFETIL) [Concomitant]
  4. PGE 1 (ALPROSTADIL) [Concomitant]

REACTIONS (2)
  - CEREBRAL HAEMORRHAGE [None]
  - POST PROCEDURAL HAEMORRHAGE [None]
